FAERS Safety Report 8807150 (Version 1)
Quarter: 2012Q4

REPORT INFORMATION
  Report Type: 
  Country: US (occurrence: US)
  Receive Date: 20120925
  Receipt Date: 20120925
  Transmission Date: 20130627
  Serious: Yes (Other)
  Sender: FDA-Public Use
  Company Number: US-ARROW-2012-16009

PATIENT
  Sex: Female

DRUGS (2)
  1. ALENDRONATE SODIUM [Suspect]
     Indication: OSTEOPOROSIS
     Dosage: ^as prescribed and in a foreseeable manner^
     Route: 048
  2. FOSAMAX [Suspect]
     Indication: OSTEOPOROSIS
     Dosage: ^as prescribed and in a foreseeable manner^
     Route: 048

REACTIONS (3)
  - Jaw disorder [Unknown]
  - Femur fracture [Unknown]
  - Incorrect drug administration duration [Unknown]
